FAERS Safety Report 6618556-7 (Version None)
Quarter: 2010Q1

REPORT INFORMATION
  Report Type: 
  Country: None (occurrence: None)
  Receive Date: 20100308
  Receipt Date: 20100225
  Transmission Date: 20100710
  Serious: Yes (Other)
  Sender: FDA-Public Use
  Company Number: US-MERCK-1003USA00503

PATIENT
  Age: 80 Year
  Sex: Female

DRUGS (7)
  1. PRINIVIL [Suspect]
     Indication: HYPERTENSION
     Route: 048
  2. COUMADIN [Suspect]
     Indication: ATRIAL FIBRILLATION
     Route: 048
     Dates: start: 20091001
  3. ASPIRIN [Concomitant]
     Route: 065
  4. DILTIAZEM HYDROCHLORIDE [Concomitant]
     Route: 065
  5. DIGOXIN [Concomitant]
     Route: 065
  6. MICARDIS [Concomitant]
     Route: 065
  7. ATENOLOL [Suspect]
     Indication: HYPERTENSION
     Route: 065

REACTIONS (7)
  - ABDOMINAL DISCOMFORT [None]
  - ANXIETY [None]
  - ASTHENIA [None]
  - INSOMNIA [None]
  - INTERNATIONAL NORMALISED RATIO FLUCTUATION [None]
  - TREMOR [None]
  - WEIGHT DECREASED [None]
